FAERS Safety Report 12075521 (Version 3)
Quarter: 2016Q2

REPORT INFORMATION
  Report Type: Spontaneous
  Country: US (occurrence: US)
  Receive Date: 20160213
  Receipt Date: 20160414
  Transmission Date: 20160815
  Serious: Yes (Other)
  Sender: FDA-Public Use
  Company Number: US-009507513-1602USA003097

PATIENT
  Sex: Female
  Weight: 118.37 kg

DRUGS (4)
  1. NEXPLANON [Suspect]
     Active Substance: ETONOGESTREL
     Dosage: 1 IMPLANT / 3 YEARS
     Route: 059
     Dates: start: 20150803
  2. BUSPAR [Concomitant]
     Active Substance: BUSPIRONE HYDROCHLORIDE
     Dosage: UNK
  3. LAMICTAL [Concomitant]
     Active Substance: LAMOTRIGINE
     Dosage: UNK
  4. NEXPLANON [Suspect]
     Active Substance: ETONOGESTREL
     Indication: CONTRACEPTION
     Dosage: 1 IMPLANT / 3 YEARS
     Route: 059
     Dates: start: 2010, end: 201507

REACTIONS (15)
  - Device deployment issue [Recovered/Resolved]
  - Unintended pregnancy [Recovered/Resolved]
  - Device breakage [Recovered/Resolved]
  - Incorrect drug administration duration [Unknown]
  - Gait disturbance [Unknown]
  - Device difficult to use [Recovered/Resolved]
  - Metrorrhagia [Unknown]
  - Pain [Unknown]
  - Pregnancy with implant contraceptive [Recovered/Resolved]
  - Menstrual disorder [Unknown]
  - Device adhesion issue [Recovered/Resolved]
  - Surgical procedure repeated [Recovered/Resolved]
  - Muscle spasms [Unknown]
  - Abortion spontaneous [Unknown]
  - Menometrorrhagia [Unknown]

NARRATIVE: CASE EVENT DATE: 2010
